FAERS Safety Report 24705190 (Version 1)
Quarter: 2024Q4

REPORT INFORMATION
  Report Type: Spontaneous
  Country: ES (occurrence: ES)
  Receive Date: 20241206
  Receipt Date: 20241206
  Transmission Date: 20250115
  Serious: Yes (Other)
  Sender: CSL BEHRING
  Company Number: ES-BEH-2024186729

PATIENT
  Age: 17 Year
  Sex: Male

DRUGS (2)
  1. HAEMATE P [Suspect]
     Active Substance: ANTIHEMOPHILIC FACTOR HUMAN
     Indication: Von Willebrand^s disease
     Dosage: UNK, ON DEMAND
     Route: 065
  2. HAEMATE P [Suspect]
     Active Substance: ANTIHEMOPHILIC FACTOR HUMAN
     Dosage: 40 IU/KG
     Route: 065

REACTIONS (3)
  - Haemarthrosis [Recovered/Resolved]
  - Hypertrophy [Unknown]
  - Cartilage injury [Unknown]
